FAERS Safety Report 24937272 (Version 3)
Quarter: 2025Q1

REPORT INFORMATION
  Report Type: Spontaneous
  Country: US (occurrence: US)
  Receive Date: 20250206
  Receipt Date: 20250214
  Transmission Date: 20250409
  Serious: No
  Sender: BIOGEN
  Company Number: US-BIOGEN-2025BI01299414

PATIENT
  Sex: Female

DRUGS (4)
  1. TECFIDERA [Suspect]
     Active Substance: DIMETHYL FUMARATE
     Indication: Multiple sclerosis
     Route: 050
     Dates: start: 20150430, end: 202108
  2. TECFIDERA [Suspect]
     Active Substance: DIMETHYL FUMARATE
     Route: 050
     Dates: start: 202211, end: 202308
  3. TECFIDERA [Suspect]
     Active Substance: DIMETHYL FUMARATE
     Route: 050
     Dates: start: 202412
  4. TECFIDERA [Suspect]
     Active Substance: DIMETHYL FUMARATE
     Dosage: TAKEN A REDUCED DOSE
     Route: 050
     Dates: end: 20250208

REACTIONS (8)
  - Expired product administered [Not Recovered/Not Resolved]
  - Nasopharyngitis [Not Recovered/Not Resolved]
  - Gastrointestinal disorder [Unknown]
  - Flushing [Unknown]
  - Rash [Recovered/Resolved with Sequelae]
  - Erythema [Recovered/Resolved]
  - Pruritus [Recovered/Resolved]
  - Obsessive-compulsive disorder [Unknown]

NARRATIVE: CASE EVENT DATE: 20150101
